FAERS Safety Report 19187884 (Version 1)
Quarter: 2021Q2

REPORT INFORMATION
  Report Type: Spontaneous
  Country: JP (occurrence: JP)
  Receive Date: 20210428
  Receipt Date: 20210428
  Transmission Date: 20210717
  Serious: Yes (Other)
  Sender: FDA-Public Use
  Company Number: JP-AMGEN-JPNSP2021063000

PATIENT
  Sex: Female

DRUGS (1)
  1. ROMOSOZUMAB [Suspect]
     Active Substance: ROMOSOZUMAB
     Indication: OSTEOPOROSIS POSTMENOPAUSAL
     Dosage: 210 MILLIGRAM, QMO
     Route: 065

REACTIONS (3)
  - Foot fracture [Unknown]
  - Hypocalcaemia [Unknown]
  - Pathological fracture [Unknown]

NARRATIVE: CASE EVENT DATE: 2019
